FAERS Safety Report 9538633 (Version 1)
Quarter: 2013Q3

REPORT INFORMATION
  Report Type: Spontaneous
  Country: JP (occurrence: JP)
  Receive Date: 20130920
  Receipt Date: 20130920
  Transmission Date: 20140515
  Serious: Yes (Death)
  Sender: FDA-Public Use
  Company Number: JP-ROCHE-1277777

PATIENT
  Age: 79 Year
  Sex: Male
  Weight: 60 kg

DRUGS (8)
  1. AVASTIN [Suspect]
     Indication: RECTAL CANCER METASTATIC
     Dosage: REAL ADMINISTERING DAYS: THE SECOND
     Route: 041
     Dates: start: 20130626, end: 20130710
  2. IRINOTECAN HYDROCHLORIDE [Suspect]
     Indication: RECTAL CANCER METASTATIC
     Dosage: REAL ADMINISTERING DAYS: THE FIRST
     Route: 041
     Dates: start: 20130529, end: 20130529
  3. IRINOTECAN HYDROCHLORIDE [Suspect]
     Indication: RECTAL CANCER METASTATIC
     Dosage: REAL ADMINISTERING DAYS: THE SECOND
     Route: 041
     Dates: start: 20130626, end: 20130710
  4. 5-FU [Suspect]
     Indication: RECTAL CANCER METASTATIC
     Dosage: REAL ADMINISTERING DAYS: THE FIRST
     Route: 040
     Dates: start: 20130529, end: 20130529
  5. 5-FU [Suspect]
     Indication: RECTAL CANCER METASTATIC
     Dosage: REAL ADMINISTERING DAYS: THE FIRST
     Route: 041
     Dates: start: 20130529, end: 20130529
  6. 5-FU [Suspect]
     Indication: RECTAL CANCER METASTATIC
     Dosage: REAL ADMINISTERING DAYS: THE SECOND
     Route: 040
     Dates: start: 20130626, end: 20130710
  7. 5-FU [Suspect]
     Indication: RECTAL CANCER METASTATIC
     Dosage: REAL ADMINISTERING DAYS: THE SECOND
     Route: 041
     Dates: start: 20130626, end: 20130710
  8. LEVOFOLENE [Suspect]
     Indication: RECTAL CANCER METASTATIC
     Dosage: REAL ADMINISTERING DAYS: THE FIRST
     Route: 041
     Dates: start: 20130529, end: 20130529

REACTIONS (1)
  - Interstitial lung disease [Fatal]
